FAERS Safety Report 14901999 (Version 1)
Quarter: 2018Q2

REPORT INFORMATION
  Report Type: Spontaneous
  Country: UY (occurrence: UY)
  Receive Date: 20180516
  Receipt Date: 20180516
  Transmission Date: 20180711
  Serious: Yes (Hospitalization)
  Sender: FDA-Public Use
  Company Number: UY-BAYER-2018-090690

PATIENT
  Age: 41 Year
  Sex: Female

DRUGS (3)
  1. LORATADIN [Concomitant]
     Active Substance: LORATADINE
  2. YAZ [Suspect]
     Active Substance: DROSPIRENONE\ETHINYL ESTRADIOL
     Indication: CONTRACEPTION
     Dosage: UNK
     Route: 048
     Dates: start: 2005
  3. SERTRALINE [Concomitant]
     Active Substance: SERTRALINE HYDROCHLORIDE

REACTIONS (2)
  - Amenorrhoea [Not Recovered/Not Resolved]
  - Facial paralysis [None]

NARRATIVE: CASE EVENT DATE: 201803
